FAERS Safety Report 6179796-7 (Version None)
Quarter: 2009Q2

REPORT INFORMATION
  Report Type: 
  Country: None (occurrence: None)
  Receive Date: 20090505
  Receipt Date: 20090423
  Transmission Date: 20091009
  Serious: Yes (Other)
  Sender: FDA-Public Use
  Company Number: MX-PFIZER INC-2009206000

PATIENT

DRUGS (3)
  1. MARAVIROC [Suspect]
     Indication: HIV INFECTION
     Dosage: 150 MG, 2X/DAY
     Route: 048
     Dates: start: 20081204
  2. RITONAVIR [Concomitant]
     Dosage: UNK
     Route: 048
     Dates: start: 20081204
  3. ETRAVIRINE [Concomitant]
     Dosage: UNK
     Route: 048
     Dates: start: 20091204

REACTIONS (1)
  - PENIS CARCINOMA [None]
